FAERS Safety Report 12637932 (Version 2)
Quarter: 2017Q2

REPORT INFORMATION
  Report Type: Spontaneous
  Country: US (occurrence: US)
  Receive Date: 20160809
  Receipt Date: 20170503
  Transmission Date: 20170830
  Serious: No
  Sender: FDA-Public Use
  Company Number: US-SA-2016SA098946

PATIENT
  Age: 53 Year
  Sex: Male
  Weight: 167 kg

DRUGS (6)
  1. PRALUENT [Suspect]
     Active Substance: ALIROCUMAB
     Indication: BLOOD CHOLESTEROL INCREASED
     Route: 058
     Dates: start: 201604, end: 201608
  2. GINGER. [Concomitant]
     Active Substance: GINGER
  3. PLAVIX [Concomitant]
     Active Substance: CLOPIDOGREL BISULFATE
  4. METOPROLOL. [Concomitant]
     Active Substance: METOPROLOL
  5. ASPIRIN. [Concomitant]
     Active Substance: ASPIRIN
     Dosage: 81 MG
  6. ALIROCUMAB PREFILLED PEN [Concomitant]
     Active Substance: ALIROCUMAB
     Indication: BLOOD CHOLESTEROL INCREASED
     Route: 058
     Dates: start: 201604, end: 201608

REACTIONS (16)
  - Diarrhoea [Not Recovered/Not Resolved]
  - Decreased appetite [Not Recovered/Not Resolved]
  - Confusional state [Recovered/Resolved]
  - Cluster headache [Unknown]
  - Condition aggravated [Unknown]
  - Pain in jaw [Recovered/Resolved]
  - Fatigue [Not Recovered/Not Resolved]
  - Dizziness [Recovered/Resolved]
  - Injection site bruising [Recovered/Resolved]
  - Balance disorder [Recovered/Resolved]
  - Feeling abnormal [Recovered/Resolved]
  - Weight decreased [Not Recovered/Not Resolved]
  - Dysgeusia [Unknown]
  - Respiratory tract congestion [Unknown]
  - Sinus disorder [Unknown]
  - Dyspnoea [Unknown]

NARRATIVE: CASE EVENT DATE: 201604
